FAERS Safety Report 10425088 (Version 2)
Quarter: 2014Q3

REPORT INFORMATION
  Report Type: Spontaneous
  Country: US (occurrence: US)
  Receive Date: 20140902
  Receipt Date: 20140910
  Transmission Date: 20150326
  Serious: Yes (Other)
  Sender: FDA-Public Use
  Company Number: US-GLAXOSMITHKLINE-A1087310A

PATIENT
  Age: 56 Year
  Sex: Female

DRUGS (5)
  1. LEVOTHYROXINE [Concomitant]
     Active Substance: LEVOTHYROXINE
  2. NORCO [Concomitant]
     Active Substance: ACETAMINOPHEN\HYDROCODONE BITARTRATE
  3. EFFEXOR [Concomitant]
     Active Substance: VENLAFAXINE HYDROCHLORIDE
  4. CLONAZEPAM. [Concomitant]
     Active Substance: CLONAZEPAM
  5. LAMICTAL [Suspect]
     Active Substance: LAMOTRIGINE
     Indication: CONVULSION
     Dosage: 50MG PER DAY
     Route: 048
     Dates: start: 2012

REACTIONS (7)
  - Drug ineffective [Recovered/Resolved]
  - Joint injury [Unknown]
  - Multiple fractures [Unknown]
  - Fall [Recovered/Resolved]
  - Balance disorder [Unknown]
  - Upper limb fracture [Unknown]
  - Memory impairment [Not Recovered/Not Resolved]

NARRATIVE: CASE EVENT DATE: 2012
